FAERS Safety Report 8875644 (Version 1)
Quarter: 2012Q4

REPORT INFORMATION
  Report Type: 
  Country: BR (occurrence: BR)
  Receive Date: 20121023
  Receipt Date: 20121023
  Transmission Date: 20130627
  Serious: Yes (Other)
  Sender: FDA-Public Use
  Company Number: PHHY2012BR094401

PATIENT
  Age: 73 Year
  Sex: Female

DRUGS (6)
  1. RASILEZ [Suspect]
     Indication: HYPERTENSION
     Dosage: 1 DF(300 mg), daily
     Route: 048
  2. SIMVASTATIN [Concomitant]
     Indication: HYPERCHOLESTEROLAEMIA
     Dosage: 1 DF, daily
     Route: 048
  3. FLUOXETINA [Concomitant]
     Indication: DEPRESSION
     Dosage: 1 DF, per day
     Route: 048
  4. DAFLON [Concomitant]
     Indication: VARICOSE VEIN
     Dosage: UNK UKN, UNK
  5. OMEPRAZOLE [Concomitant]
     Indication: GASTROINTESTINAL DISORDER
     Dosage: UNK UKN, UNK
  6. FLUPHENAZINE (VERTIZAN) [Concomitant]
     Indication: LABYRINTHITIS

REACTIONS (2)
  - Drooling [Not Recovered/Not Resolved]
  - Gastric haemorrhage [Not Recovered/Not Resolved]
